FAERS Safety Report 5564269-2 (Version None)
Quarter: 2007Q4

REPORT INFORMATION
  Report Type: 
  Country: None (occurrence: None)
  Receive Date: 20071212
  Receipt Date: 20071203
  Transmission Date: 20080405
  Serious: Yes (Hospitalization)
  Sender: FDA-Public Use
  Company Number: GXKR2007GR10354

PATIENT
  Age: 67 Year
  Sex: Female

DRUGS (2)
  1. MEFLOQUINE [Suspect]
     Indication: MALARIA PROPHYLAXIS
     Dosage: 250 MG, QW, ORAL
     Route: 048
  2. KETOCONAZOLE [Suspect]
     Indication: TINEA VERSICOLOUR
     Dosage: TOPICAL
     Route: 061

REACTIONS (7)
  - BLOOD LACTATE DEHYDROGENASE INCREASED [None]
  - EOSINOPHILIC PNEUMONIA [None]
  - HYPOXIA [None]
  - MALAISE [None]
  - NORMOCHROMIC NORMOCYTIC ANAEMIA [None]
  - PULMONARY TOXICITY [None]
  - TACHYCARDIA [None]
